FAERS Safety Report 4821146-X (Version None)
Quarter: 2005Q4

REPORT INFORMATION
  Report Type: 
  Country: None (occurrence: None)
  Receive Date: 20051103
  Receipt Date: 20051025
  Transmission Date: 20060501
  Serious: Yes (Other)
  Sender: FDA-Public Use
  Company Number: 2005147114

PATIENT
  Age: 76 Year
  Sex: Male
  Weight: 70.3075 kg

DRUGS (4)
  1. LIPITOR [Suspect]
     Indication: PROPHYLAXIS
     Dosage: 20 MG (1 IN 1 D), ORAL
     Route: 048
  2. PLAVIX [Concomitant]
  3. ACCUPRIL [Concomitant]
  4. PROSCAR [Concomitant]

REACTIONS (8)
  - BLOOD TEST ABNORMAL [None]
  - CARDIAC VALVE DISEASE [None]
  - CEREBROVASCULAR ACCIDENT [None]
  - GLAUCOMA [None]
  - OCULAR NEOPLASM [None]
  - SINUS DISORDER [None]
  - TRANSIENT ISCHAEMIC ATTACK [None]
  - WRONG TECHNIQUE IN DRUG USAGE PROCESS [None]
